FAERS Safety Report 8302779-5 (Version None)
Quarter: 2012Q2

REPORT INFORMATION
  Report Type: 
  Country: None (occurrence: None)
  Receive Date: 20120420
  Receipt Date: 20110913
  Transmission Date: 20120825
  Serious: No
  Sender: FDA-Public Use
  Company Number: US-PFIZER INC-K201101069

PATIENT
  Sex: Female

DRUGS (3)
  1. COUMADIN [Interacting]
     Dosage: 10 MG, 1X/DAY
  2. TAPAZOLE [Suspect]
     Dosage: UNK
     Route: 048
  3. COUMADIN [Interacting]
     Dosage: 5 MG, 1X/DAY

REACTIONS (2)
  - INTERNATIONAL NORMALISED RATIO ABNORMAL [None]
  - DRUG INTERACTION [None]
